FAERS Safety Report 10236307 (Version 1)
Quarter: 2014Q1

REPORT INFORMATION
  Report Type: Spontaneous
  Country: US (occurrence: None)
  Receive Date: 20140306
  Receipt Date: 20140306
  Transmission Date: 20141002
  Serious: Yes (Other)
  Sender: FDA-Public Use
  Company Number: 163-21880-13044057

PATIENT
  Age: 66 Year
  Sex: Female

DRUGS (5)
  1. REVLIMID (LENALIDOMIDE) [Suspect]
     Indication: PLASMA CELL MYELOMA
     Route: 048
     Dates: start: 20080909
  2. DEXAMETHASONE [Concomitant]
  3. SINGULAIR (MONTELUKAST) [Concomitant]
  4. DULERA (DULERA) [Concomitant]
  5. MVI (MVI) [Concomitant]

REACTIONS (2)
  - Cataract [None]
  - Seasonal allergy [None]
